FAERS Safety Report 24014744 (Version 1)
Quarter: 2024Q2

REPORT INFORMATION
  Report Type: Spontaneous
  Country: US (occurrence: None)
  Receive Date: 20240625
  Receipt Date: 20240625
  Transmission Date: 20240716
  Serious: No
  Sender: FDA-Public Use
  Company Number: None

PATIENT
  Age: 36 Year
  Sex: Female
  Weight: 49.5 kg

DRUGS (5)
  1. MIRENA [Suspect]
     Active Substance: LEVONORGESTREL
     Indication: Contraception
     Dosage: OTHER ROUTE : INTRAUTERINE;?
     Route: 050
     Dates: start: 20240320
  2. MIRENA [Suspect]
     Active Substance: LEVONORGESTREL
     Indication: Heavy menstrual bleeding
  3. LEXAPRO [Concomitant]
     Active Substance: ESCITALOPRAM OXALATE
  4. MIRENA [Concomitant]
     Active Substance: LEVONORGESTREL
  5. Biotin supplement [Concomitant]

REACTIONS (3)
  - Vaginal discharge [None]
  - Impaired quality of life [None]
  - Personality disorder [None]

NARRATIVE: CASE EVENT DATE: 20240320
